FAERS Safety Report 10989742 (Version 1)
Quarter: 2015Q1

REPORT INFORMATION
  Report Type: Spontaneous
  Country: US (occurrence: None)
  Receive Date: 20150326
  Receipt Date: 20150326
  Transmission Date: 20150721
  Serious: No
  Sender: FDA-Public Use
  Company Number: 1000074787

PATIENT
  Age: 84 Year
  Sex: Female

DRUGS (3)
  1. LINZESS [Suspect]
     Active Substance: LINACLOTIDE
     Indication: FLATULENCE
     Dosage: 145 MCG (145 MCG, 1 IN 1 D)?5 DAYS AGO - ONGOING
  2. LINZESS [Suspect]
     Active Substance: LINACLOTIDE
     Indication: ABDOMINAL DISTENSION
     Dosage: 145 MCG (145 MCG, 1 IN 1 D)?5 DAYS AGO - ONGOING
  3. MIRALAX (MACROGOL) [Concomitant]

REACTIONS (2)
  - Intentional product misuse [None]
  - Faeces hard [None]
